FAERS Safety Report 8062613-8 (Version None)
Quarter: 2012Q1

REPORT INFORMATION
  Report Type: 
  Country: None (occurrence: None)
  Receive Date: 20120117
  Receipt Date: 20120109
  Transmission Date: 20120608
  Serious: Yes (Hospitalization)
  Sender: FDA-Public Use
  Company Number: 2012MA000502

PATIENT
  Age: 27 Year
  Sex: Male

DRUGS (1)
  1. VENLAFAXINE HCL [Suspect]
     Indication: INTENTIONAL OVERDOSE
     Dosage: 6.3 G;X1;PO
     Route: 048

REACTIONS (6)
  - AGITATION [None]
  - RESPIRATORY FAILURE [None]
  - OVERDOSE [None]
  - SUICIDAL IDEATION [None]
  - EOSINOPHILIC PNEUMONIA ACUTE [None]
  - SHOCK [None]
